FAERS Safety Report 14775897 (Version 5)
Quarter: 2021Q2

REPORT INFORMATION
  Report Type: Spontaneous
  Country: DE (occurrence: DE)
  Receive Date: 20180418
  Receipt Date: 20210511
  Transmission Date: 20210716
  Serious: Yes (Congenital Anomaly, Other)
  Sender: FDA-Public Use
  Company Number: DE-UCBSA-2018015767

PATIENT
  Age: 0 Year
  Sex: Male
  Weight: 3 kg

DRUGS (2)
  1. KEPPRA [Suspect]
     Active Substance: LEVETIRACETAM
     Indication: EPILEPSY
     Dosage: 3000 MG/DAILY
     Route: 064
     Dates: start: 20170312, end: 20171211
  2. VIMPAT [Suspect]
     Active Substance: LACOSAMIDE
     Indication: EPILEPSY
     Dosage: 600 MG/DAILY
     Route: 064
     Dates: start: 20170312, end: 20171211

REACTIONS (5)
  - Atrial septal defect [Unknown]
  - Tricuspid valve incompetence [Unknown]
  - Congenital choroid plexus cyst [Unknown]
  - Bradycardia neonatal [Recovered/Resolved]
  - Maternal exposure during pregnancy [Unknown]

NARRATIVE: CASE EVENT DATE: 201703
